FAERS Safety Report 14009017 (Version 3)
Quarter: 2018Q1

REPORT INFORMATION
  Report Type: Spontaneous
  Country: US (occurrence: US)
  Receive Date: 20170925
  Receipt Date: 20180130
  Transmission Date: 20180508
  Serious: No
  Sender: FDA-Public Use
  Company Number: US-LEXICON PHARMACEUTICALS, INC-17-1606-00813

PATIENT
  Age: 46 Year
  Sex: Female

DRUGS (17)
  1. ZENPEP [Concomitant]
     Active Substance: PANCRELIPASE AMYLASE\PANCRELIPASE LIPASE\PANCRELIPASE PROTEASE
  2. LIOTHYRONINE [Concomitant]
     Active Substance: LIOTHYRONINE
  3. SANDOSTATIN [Concomitant]
     Active Substance: OCTREOTIDE ACETATE
  4. BACLOFEN. [Concomitant]
     Active Substance: BACLOFEN
  5. LEVOTHYROXIN [Concomitant]
     Active Substance: LEVOTHYROXINE
  6. FLUTICASONE. [Concomitant]
     Active Substance: FLUTICASONE
  7. LOSARTAN. [Concomitant]
     Active Substance: LOSARTAN
  8. COMPAZINE [Concomitant]
     Active Substance: PROCHLORPERAZINE MALEATE
  9. FIORICET [Concomitant]
     Active Substance: ACETAMINOPHEN\BUTALBITAL\CAFFEINE
  10. TELOTRISTAT ETHYL [Suspect]
     Active Substance: TELOTRISTAT ETHYL
     Route: 048
     Dates: start: 2017
  11. NEXIUM [Concomitant]
     Active Substance: ESOMEPRAZOLE MAGNESIUM
  12. JANUVIA [Concomitant]
     Active Substance: SITAGLIPTIN PHOSPHATE
  13. LORAZEPAM. [Concomitant]
     Active Substance: LORAZEPAM
  14. ATORVASTATIN [Concomitant]
     Active Substance: ATORVASTATIN
  15. TELOTRISTAT ETHYL [Suspect]
     Active Substance: TELOTRISTAT ETHYL
     Indication: CARCINOID SYNDROME
     Route: 048
     Dates: start: 20170814, end: 2017
  16. PROAIR HFA [Concomitant]
     Active Substance: ALBUTEROL SULFATE
  17. VITAMIN D3 [Concomitant]
     Active Substance: CHOLECALCIFEROL

REACTIONS (2)
  - Migraine [Recovered/Resolved]
  - Headache [Recovering/Resolving]

NARRATIVE: CASE EVENT DATE: 20170822
